FAERS Safety Report 9920057 (Version 1)
Quarter: 2014Q1

REPORT INFORMATION
  Report Type: Spontaneous
  Country: US (occurrence: US)
  Receive Date: 20140224
  Receipt Date: 20140224
  Transmission Date: 20141002
  Serious: Yes (Death, Hospitalization)
  Sender: FDA-Public Use
  Company Number: US-BANPHARM-20142182

PATIENT
  Age: 64 Year
  Sex: Male

DRUGS (1)
  1. AMANTADINE UNKNOWN PRODUCT [Suspect]
     Dosage: 300 MG, QD,
     Route: 048

REACTIONS (3)
  - Prescribed overdose [Fatal]
  - Acute respiratory distress syndrome [Fatal]
  - Neurotoxicity [Fatal]
